FAERS Safety Report 23639427 (Version 1)
Quarter: 2024Q1

REPORT INFORMATION
  Report Type: Spontaneous
  Country: PR (occurrence: PR)
  Receive Date: 20240316
  Receipt Date: 20240316
  Transmission Date: 20240409
  Serious: No
  Sender: FDA-Public Use
  Company Number: PR-GILEAD-2024-0665417

PATIENT
  Sex: Male

DRUGS (1)
  1. BIKTARVY [Suspect]
     Active Substance: BICTEGRAVIR SODIUM\EMTRICITABINE\TENOFOVIR ALAFENAMIDE FUMARATE
     Indication: Product used for unknown indication
     Route: 065

REACTIONS (3)
  - Weight increased [Recovered/Resolved]
  - Depression [Recovered/Resolved]
  - Abnormal dreams [Unknown]
